FAERS Safety Report 24830017 (Version 1)
Quarter: 2025Q1

REPORT INFORMATION
  Report Type: Spontaneous
  Country: US (occurrence: None)
  Receive Date: 20250109
  Receipt Date: 20250109
  Transmission Date: 20250408
  Serious: Yes (Death)
  Sender: FDA-CTU
  Company Number: None

PATIENT
  Sex: Male

DRUGS (9)
  1. LENALIDOMIDE [Suspect]
     Active Substance: LENALIDOMIDE
     Indication: Plasma cell myeloma
     Dosage: FREQUENCY : DAILY;?
     Dates: start: 20240918
  2. ALBUTEROL POW SULFATE [Concomitant]
  3. DARZALEX [Concomitant]
     Active Substance: DARATUMUMAB
  4. DEXAMETHASON POW AGETATE [Concomitant]
  5. EPINEPHRINE POW [Concomitant]
  6. LENALIDOMIDE CAP 1 OMG [Concomitant]
  7. VELCADE [Concomitant]
     Active Substance: BORTEZOMIB
  8. VITAMIN C TAB 500MG [Concomitant]
  9. VITAMIN D CAP 400UNIT [Concomitant]

REACTIONS (1)
  - Death [None]
